FAERS Safety Report 15431540 (Version 2)
Quarter: 2018Q3

REPORT INFORMATION
  Report Type: Spontaneous
  Country: US (occurrence: US)
  Receive Date: 20180926
  Receipt Date: 20180927
  Transmission Date: 20181010
  Serious: No
  Sender: FDA-Public Use
  Company Number: US-SA-2018SA266311

PATIENT
  Age: 45 Year
  Sex: Male

DRUGS (1)
  1. XYZAL ALLERGY 24HR [Suspect]
     Active Substance: LEVOCETIRIZINE DIHYDROCHLORIDE
     Indication: HYPERSENSITIVITY
     Dosage: 5 MG, QD

REACTIONS (6)
  - Hallucination, visual [Unknown]
  - Feeling hot [Unknown]
  - Dreamy state [Unknown]
  - Drug ineffective [Unknown]
  - Feeling abnormal [Unknown]
  - Fatigue [Unknown]
